FAERS Safety Report 4290369-3 (Version None)
Quarter: 2004Q1

REPORT INFORMATION
  Report Type: 
  Country: None (occurrence: None)
  Receive Date: 20040210
  Receipt Date: 20040202
  Transmission Date: 20041129
  Serious: Yes (Hospitalization, Other)
  Sender: FDA-Public Use
  Company Number: PHFR2004GB00892

PATIENT
  Age: 76 Year
  Sex: Male

DRUGS (6)
  1. TERBINAFINE HCL [Suspect]
     Indication: ONYCHOGRYPHOSIS
     Dosage: UNK, QD
     Route: 048
     Dates: start: 20020719, end: 20020823
  2. WARFARIN SODIUM [Suspect]
     Route: 065
     Dates: start: 20000411
  3. DIGOXIN [Concomitant]
     Dosage: UNK, QD
     Route: 065
     Dates: start: 19900924
  4. LISINOPRIL [Concomitant]
     Dosage: OM
     Route: 065
     Dates: start: 20010123
  5. OMEPRAZOLE [Concomitant]
     Dosage: ONE TO BE TAKEN/DAY
     Route: 065
     Dates: end: 20020626
  6. OMEPRAZOLE [Concomitant]
     Dates: start: 20020703

REACTIONS (2)
  - DRUG INTERACTION [None]
  - HAEMATURIA [None]
